FAERS Safety Report 8230340-X (Version None)
Quarter: 2012Q1

REPORT INFORMATION
  Report Type: 
  Country: None (occurrence: None)
  Receive Date: 20120320
  Receipt Date: 20120309
  Transmission Date: 20120608
  Serious: Yes (Hospitalization)
  Sender: FDA-Public Use
  Company Number: AUR-APL-2012-01398

PATIENT
  Age: 62 Year
  Sex: Female

DRUGS (2)
  1. ZOPICLONE (ZOPICLONE) [Concomitant]
  2. SERTRALINE HYDROCHLORIDE [Suspect]
     Indication: PRODUCT USED FOR UNKNOWN INDICATION
     Dosage: (25 MG), ORAL
     Route: 048
     Dates: start: 20120105, end: 20120108

REACTIONS (1)
  - NERVOUS SYSTEM DISORDER [None]
